FAERS Safety Report 5423583-1 (Version None)
Quarter: 2007Q3

REPORT INFORMATION
  Report Type: 
  Country: None (occurrence: None)
  Receive Date: 20070727
  Receipt Date: 20070609
  Transmission Date: 20080115
  Serious: No
  Sender: FDA-Public Use
  Company Number: 264461

PATIENT
  Age: 53 Year
  Sex: Female

DRUGS (3)
  1. LEVEMIR [Suspect]
     Indication: INSULIN-REQUIRING TYPE II DIABETES MELLITUS
     Dosage: SUBCUTANEOUS
     Route: 058
     Dates: end: 20070610
  2. METFORMIN HCL [Concomitant]
  3. GLIPIZIDE [Concomitant]

REACTIONS (2)
  - OEDEMA PERIPHERAL [None]
  - TENDERNESS [None]
